FAERS Safety Report 5114301-5 (Version None)
Quarter: 2006Q3

REPORT INFORMATION
  Report Type: 
  Country: None (occurrence: None)
  Receive Date: 20060731
  Receipt Date: 20060629
  Transmission Date: 20061208
  Serious: No
  Sender: FDA-Public Use
  Company Number: 2006PV016663

PATIENT
  Age: 52 Year
  Sex: Female
  Weight: 92.5338 kg

DRUGS (3)
  1. BYETTA [Suspect]
     Indication: DIABETES MELLITUS NON-INSULIN-DEPENDENT
     Dosage: 5 MCG;BID; SC
     Route: 058
     Dates: start: 20060501
  2. GLUCOTROL [Concomitant]
  3. ACTOPLUS MET [Concomitant]

REACTIONS (3)
  - CORNEAL ABRASION [None]
  - DRY MOUTH [None]
  - KERATOCONJUNCTIVITIS SICCA [None]
